FAERS Safety Report 15349641 (Version 1)
Quarter: 2018Q3

REPORT INFORMATION
  Report Type: Spontaneous
  Country: None (occurrence: US)
  Receive Date: 20180904
  Receipt Date: 20180904
  Transmission Date: 20181010
  Serious: Yes (Other)
  Sender: FDA-Public Use
  Company Number: US-CANTON LABORATORIES, LLC-2054611

PATIENT
  Age: 84 Year
  Sex: Male

DRUGS (2)
  1. FLECAINIDE ACETATE. [Suspect]
     Active Substance: FLECAINIDE ACETATE
     Route: 065
  2. NAPROSYN [Suspect]
     Active Substance: NAPROXEN
     Indication: LUMBAR RADICULOPATHY
     Route: 065

REACTIONS (2)
  - Eosinophilic pneumonia [Recovering/Resolving]
  - Interstitial lung disease [Recovering/Resolving]
